FAERS Safety Report 6845175-X (Version None)
Quarter: 2010Q3

REPORT INFORMATION
  Report Type: 
  Country: None (occurrence: None)
  Receive Date: 20100715
  Receipt Date: 20070816
  Transmission Date: 20110219
  Serious: Yes (Other)
  Sender: FDA-Public Use
  Company Number: US-PFIZER INC-2007069377

PATIENT
  Sex: Female
  Weight: 88.5 kg

DRUGS (8)
  1. CHANTIX [Suspect]
     Indication: SMOKING CESSATION THERAPY
     Dosage: 0.5MG QD EVERYDAY TDD:0.5MG
     Dates: start: 20070814
  2. DEPAKOTE [Concomitant]
  3. AMLODIPINE [Concomitant]
  4. VASOTEC [Concomitant]
  5. ZEBETA [Concomitant]
  6. GEODON [Concomitant]
  7. LEXAPRO [Concomitant]
  8. CRESTOR [Concomitant]

REACTIONS (1)
  - HALLUCINATION, AUDITORY [None]
